FAERS Safety Report 21128033 (Version 1)
Quarter: 2022Q3

REPORT INFORMATION
  Report Type: Spontaneous
  Country: US (occurrence: US)
  Receive Date: 20220725
  Receipt Date: 20220725
  Transmission Date: 20221027
  Serious: Yes (Life-Threatening, Other)
  Sender: FDA-Public Use
  Company Number: US-ABBVIE-22K-163-4418788-00

PATIENT
  Sex: Female
  Weight: 62.198 kg

DRUGS (5)
  1. LEVOTHYROXINE [Suspect]
     Active Substance: LEVOTHYROXINE
     Indication: Hypothyroidism
     Dosage: MORNING
     Route: 048
     Dates: start: 20220524, end: 2022
  2. LEVOTHYROXINE [Suspect]
     Active Substance: LEVOTHYROXINE
     Route: 048
     Dates: start: 2022, end: 2022
  3. LEVOTHYROXINE [Suspect]
     Active Substance: LEVOTHYROXINE
     Route: 048
     Dates: start: 2022
  4. LEVOTHYROXINE [Suspect]
     Active Substance: LEVOTHYROXINE
     Indication: Hypothyroidism
     Route: 065
  5. PREDNISONE [Concomitant]
     Active Substance: PREDNISONE
     Indication: Steroid therapy

REACTIONS (16)
  - Anxiety [Recovering/Resolving]
  - Adverse drug reaction [Recovering/Resolving]
  - Hypersensitivity [Recovering/Resolving]
  - Respiration abnormal [Recovering/Resolving]
  - Pharyngeal swelling [Recovering/Resolving]
  - Eye swelling [Recovering/Resolving]
  - Rash [Recovering/Resolving]
  - Laryngeal oedema [Recovering/Resolving]
  - Aphasia [Recovering/Resolving]
  - Tracheal oedema [Recovering/Resolving]
  - Pruritus [Recovering/Resolving]
  - Swelling face [Recovering/Resolving]
  - Swelling [Recovering/Resolving]
  - Burning sensation [Recovering/Resolving]
  - Swollen tongue [Recovering/Resolving]
  - Sluggishness [Recovering/Resolving]

NARRATIVE: CASE EVENT DATE: 20220101
